FAERS Safety Report 7646779-7 (Version None)
Quarter: 2011Q3

REPORT INFORMATION
  Report Type: 
  Country: None (occurrence: None)
  Receive Date: 20110729
  Receipt Date: 20110729
  Transmission Date: 20111222
  Serious: Yes (Disabling)
  Sender: FDA-Public Use
  Company Number: None

PATIENT
  Age: 60 Year
  Sex: Female
  Weight: 44.9061 kg

DRUGS (1)
  1. CRESTOR [Suspect]
     Indication: BLOOD TRIGLYCERIDES INCREASED
     Dosage: 10 MG TABLET 1 A DAY
     Dates: start: 20100601, end: 20100801

REACTIONS (2)
  - NEUROPATHY PERIPHERAL [None]
  - INSOMNIA [None]
